FAERS Safety Report 4673080-6 (Version None)
Quarter: 2005Q2

REPORT INFORMATION
  Report Type: 
  Country: None (occurrence: None)
  Receive Date: 20050523
  Receipt Date: 20050509
  Transmission Date: 20051028
  Serious: Yes (Hospitalization, Other)
  Sender: FDA-Public Use
  Company Number: PHHO2004JP15884

PATIENT
  Age: 65 Year
  Sex: Male
  Weight: 55.0213 kg

DRUGS (3)
  1. VISUDYNE [Suspect]
     Indication: MACULAR DEGENERATION
     Dosage: 4.8 ML DAILY IV
     Route: 042
     Dates: start: 20040917, end: 20040917
  2. AMLODIN [Concomitant]
  3. DIOVAN [Concomitant]

REACTIONS (7)
  - CONDITION AGGRAVATED [None]
  - HYPHAEMA [None]
  - POST PROCEDURAL COMPLICATION [None]
  - RETINAL DEGENERATION [None]
  - RETINAL HAEMORRHAGE [None]
  - VISUAL ACUITY REDUCED [None]
  - VITREOUS HAEMORRHAGE [None]
